FAERS Safety Report 8785584 (Version 2)
Quarter: 2019Q3

REPORT INFORMATION
  Report Type: Spontaneous
  Country: DE (occurrence: DE)
  Receive Date: 20120914
  Receipt Date: 20190904
  Transmission Date: 20191005
  Serious: Yes (Congenital Anomaly, Other)
  Sender: FDA-Public Use
  Company Number: DE-UCBSA-065423

PATIENT
  Age: 0 Year
  Sex: Female
  Weight: 2.95 kg

DRUGS (15)
  1. LAMOTRIGIN [Suspect]
     Active Substance: LAMOTRIGINE
     Dosage: TOTAL DAILY DOSE: 250MG, GESTATIONAL WEEK: 10-12
     Route: 064
     Dates: start: 2011, end: 2011
  2. VIMPAT [Suspect]
     Active Substance: LACOSAMIDE
     Dosage: TOTAL DAILY DOSE: 150 MG, GESTATIONAL WEEK: 12-13
     Route: 064
     Dates: start: 2011, end: 2011
  3. LAMOTRIGIN [Suspect]
     Active Substance: LAMOTRIGINE
     Dosage: TOTAL DAILY DOSE: 225 MG, GESTATIONAL WEEK: 10-11
     Route: 064
     Dates: start: 2011, end: 2011
  4. VIMPAT [Suspect]
     Active Substance: LACOSAMIDE
     Dosage: TOTAL DAILY DOSE: 200MG, GESTATIONAL WEEK: 11-12
     Route: 064
     Dates: start: 2011, end: 2011
  5. LAMOTRIGIN [Suspect]
     Active Substance: LAMOTRIGINE
     Indication: EPILEPSY
     Dosage: TOTAL DAILY DOSE: 300 MG
     Route: 064
     Dates: start: 201103, end: 2011
  6. ZEBINIX [Concomitant]
     Active Substance: ESLICARBAZEPINE ACETATE
     Indication: EPILEPSY
     Dosage: TOTAL DAILY DOSE: 200MG, 0-4.5 GESTATIONAL WEEK
     Route: 064
     Dates: start: 201103, end: 20110323
  7. FOLIO FORTE [Concomitant]
     Active Substance: FOLIC ACID\VITAMINS
     Indication: PROPHYLAXIS OF NEURAL TUBE DEFECT
     Dosage: 8.3-41 GASTATIONAL WEEK
     Route: 064
     Dates: start: 20110418, end: 20111202
  8. VIMPAT [Suspect]
     Active Substance: LACOSAMIDE
     Dosage: TOTAL DAILY DOSE: 100 MG, GESTATIONAL WEEK: 13-14
     Route: 064
     Dates: start: 2011, end: 2011
  9. VIMPAT [Suspect]
     Active Substance: LACOSAMIDE
     Dosage: DOSE: 50 M, GESTATIONAL WEEK: 14-15
     Route: 064
     Dates: start: 2011, end: 2011
  10. LAMOTRIGIN [Suspect]
     Active Substance: LAMOTRIGINE
     Dosage: TOTAL DAILY DOSE: 300MG, GESTATIONAL WEEK: 13-15
     Route: 064
     Dates: start: 2011, end: 2011
  11. VIMPAT [Suspect]
     Active Substance: LACOSAMIDE
     Indication: EPILEPSY
     Dosage: TOTAL DAILY DOSE: 250MG
     Route: 064
     Dates: start: 201103, end: 2011
  12. VIMPAT [Suspect]
     Active Substance: LACOSAMIDE
     Dosage: TOTAL DAILY DOSE: 250 MG, GESTATIONAL WEEK: 10-11
     Route: 064
     Dates: start: 2011, end: 2011
  13. VIMPAT [Suspect]
     Active Substance: LACOSAMIDE
     Route: 064
     Dates: start: 2011, end: 20111202
  14. LAMOTRIGIN [Suspect]
     Active Substance: LAMOTRIGINE
     Dosage: TOTAL DAILY DOSE: 275MG, GESTATIONAL WEEK: 12-13
     Route: 064
     Dates: start: 2011, end: 2011
  15. LAMOTRIGIN [Suspect]
     Active Substance: LAMOTRIGINE
     Route: 064
     Dates: start: 2011, end: 20111202

REACTIONS (4)
  - Maternal exposure during pregnancy [Recovered/Resolved]
  - Directional Doppler flow tests abnormal [Recovered/Resolved]
  - Small for dates baby [Unknown]
  - Atrial septal defect [Recovered/Resolved]

NARRATIVE: CASE EVENT DATE: 201103
